FAERS Safety Report 7860538-1 (Version None)
Quarter: 2011Q4

REPORT INFORMATION
  Report Type: 
  Country: None (occurrence: None)
  Receive Date: 20111027
  Receipt Date: 20111025
  Transmission Date: 20120403
  Serious: No
  Sender: FDA-Public Use
  Company Number: US-PFIZER INC-2011260088

PATIENT
  Sex: Male
  Weight: 97.506 kg

DRUGS (4)
  1. CRESTOR [Concomitant]
     Indication: BLOOD CHOLESTEROL INCREASED
     Dosage: UNK
  2. RAMIPRIL [Concomitant]
     Indication: HYPERTENSION
     Dosage: UNK
  3. CARVEDILOL [Concomitant]
     Indication: HYPERTENSION
     Dosage: UNK
  4. IBUPROFEN (ADVIL) [Suspect]
     Dosage: 200 MG, AS NEEDED
     Route: 048

REACTIONS (1)
  - DRUG INEFFECTIVE [None]
